FAERS Safety Report 22097026 (Version 2)
Quarter: 2023Q1

REPORT INFORMATION
  Report Type: Spontaneous
  Country: BR (occurrence: BR)
  Receive Date: 20230315
  Receipt Date: 20230324
  Transmission Date: 20230417
  Serious: Yes (Life-Threatening, Hospitalization, Other)
  Sender: FDA-Public Use
  Company Number: BR-BoehringerIngelheim-2023-BI-224810

PATIENT
  Sex: Female
  Weight: 60 kg

DRUGS (1)
  1. ATROVENT [Suspect]
     Active Substance: IPRATROPIUM BROMIDE
     Indication: Asthma
     Dosage: 40 DROPS IN SALINE SOLUTION
     Route: 055

REACTIONS (5)
  - Extra dose administered [Recovered/Resolved]
  - Near death experience [Recovered/Resolved]
  - Feeling abnormal [Recovered/Resolved]
  - Lung disorder [Recovered/Resolved]
  - Prescription drug used without a prescription [Unknown]
